FAERS Safety Report 6237245-4 (Version None)
Quarter: 2009Q2

REPORT INFORMATION
  Report Type: 
  Country: None (occurrence: None)
  Receive Date: 20090619
  Receipt Date: 20090218
  Transmission Date: 20091009
  Serious: No
  Sender: FDA-Public Use
  Company Number: US-BAYER-200910630BCC

PATIENT
  Age: 44 Year
  Sex: Male

DRUGS (2)
  1. ALEVE [Suspect]
     Indication: TOOTHACHE
     Dosage: UNIT DOSE: 220 MG
     Route: 048
     Dates: start: 20090216
  2. HYDROCHLOROTHIAZIDE [Concomitant]

REACTIONS (1)
  - MIGRAINE [None]
